FAERS Safety Report 23838494 (Version 6)
Quarter: 2024Q4

REPORT INFORMATION
  Report Type: Spontaneous
  Country: US (occurrence: US)
  Receive Date: 20240509
  Receipt Date: 20241107
  Transmission Date: 20250114
  Serious: Yes (Other)
  Sender: PFIZER
  Company Number: US-PFIZER INC-202400103915

PATIENT
  Age: 82 Year
  Sex: Female
  Weight: 81.65 kg

DRUGS (3)
  1. VELSIPITY [Suspect]
     Active Substance: ETRASIMOD ARGININE
     Indication: Colitis ulcerative
     Dosage: 2 MG
  2. JANUVIA [Concomitant]
     Active Substance: SITAGLIPTIN PHOSPHATE
     Indication: Diabetes mellitus
     Dosage: UNK
  3. CALCIUM [Concomitant]
     Active Substance: CALCIUM
     Dosage: UNK

REACTIONS (12)
  - Colitis ulcerative [Unknown]
  - Nephropathy [Unknown]
  - Dehydration [Unknown]
  - Diarrhoea [Not Recovered/Not Resolved]
  - Hypertension [Unknown]
  - Blood cholesterol increased [Unknown]
  - Hypotension [Unknown]
  - Heart rate decreased [Unknown]
  - Fatigue [Unknown]
  - Asthenia [Recovering/Resolving]
  - Nausea [Recovering/Resolving]
  - Blood pressure decreased [Unknown]
